FAERS Safety Report 9642427 (Version 1)
Quarter: 2013Q4

REPORT INFORMATION
  Report Type: Spontaneous
  Country: GB (occurrence: GB)
  Receive Date: 20131024
  Receipt Date: 20131024
  Transmission Date: 20140711
  Serious: Yes (Other)
  Sender: FDA-Public Use
  Company Number: GB-009507513-1310GBR008189

PATIENT
  Age: 20 Year
  Sex: Female
  Weight: 45 kg

DRUGS (1)
  1. NEXPLANON [Suspect]
     Dosage: 68 MG, UNK
     Route: 059
     Dates: start: 201204

REACTIONS (7)
  - Dyspareunia [Not Recovered/Not Resolved]
  - Muscle tightness [Not Recovered/Not Resolved]
  - Swelling [Not Recovered/Not Resolved]
  - Cystitis [Recovered/Resolved]
  - Depression [Not Recovered/Not Resolved]
  - Menorrhagia [Not Recovered/Not Resolved]
  - Myalgia [Not Recovered/Not Resolved]
